FAERS Safety Report 7265695-6 (Version None)
Quarter: 2011Q1

REPORT INFORMATION
  Report Type: 
  Country: None (occurrence: None)
  Receive Date: 20110131
  Receipt Date: 20110124
  Transmission Date: 20110831
  Serious: Yes (Hospitalization)
  Sender: FDA-Public Use
  Company Number: JP-MERCK-1101USA03212

PATIENT
  Age: 90 Year
  Sex: Female

DRUGS (8)
  1. CLEANAL [Concomitant]
     Route: 048
  2. JANUVIA [Suspect]
     Indication: DIABETES MELLITUS
     Route: 048
     Dates: start: 20110112, end: 20110101
  3. ASPIRIN [Concomitant]
     Route: 048
  4. SINGULAIR [Concomitant]
     Route: 048
  5. PEPCID [Concomitant]
     Route: 048
  6. CLARITH [Concomitant]
     Route: 048
  7. SIGMART [Concomitant]
     Route: 048
  8. METHYCOBAL [Concomitant]
     Route: 048

REACTIONS (2)
  - JAUNDICE [None]
  - HEPATIC FUNCTION ABNORMAL [None]
